FAERS Safety Report 6415672-X (Version None)
Quarter: 2009Q4

REPORT INFORMATION
  Report Type: 
  Country: None (occurrence: None)
  Receive Date: 20091027
  Receipt Date: 20091016
  Transmission Date: 20100525
  Serious: Yes (Hospitalization)
  Sender: FDA-Public Use
  Company Number: JP-JNJFOC-20090809398

PATIENT
  Sex: Female
  Weight: 51 kg

DRUGS (10)
  1. DOXIL [Suspect]
     Dosage: CYCLE 2
     Route: 042
  2. DOXIL [Suspect]
     Indication: OVARIAN CANCER RECURRENT
     Dosage: CYCLE 1
     Route: 042
  3. GEMCITABINE [Suspect]
     Indication: DRUG USE FOR UNKNOWN INDICATION
     Dosage: 3 CYCLES COMPLETED
     Route: 065
  4. DOCETAXEL [Suspect]
     Dosage: 3 CYCLES COMPLETED
     Route: 065
  5. DOCETAXEL [Suspect]
     Indication: DRUG USE FOR UNKNOWN INDICATION
     Dosage: 5 CYCLES COMPLETED
     Route: 065
  6. DECADRON [Concomitant]
     Route: 048
  7. DECADRON [Concomitant]
     Route: 048
  8. DECADRON [Concomitant]
     Indication: PROPHYLAXIS
     Route: 048
  9. RAMOSETRON HYDROCHLORIDE [Concomitant]
     Indication: PROPHYLAXIS
     Route: 042
  10. THIAMINE MONOPHOSPHATE DISULFIDE [Concomitant]
     Indication: PROPHYLAXIS
     Route: 042

REACTIONS (1)
  - INTERSTITIAL LUNG DISEASE [None]
